FAERS Safety Report 7740637-5 (Version None)
Quarter: 2011Q3

REPORT INFORMATION
  Report Type: 
  Country: None (occurrence: None)
  Receive Date: 20110909
  Receipt Date: 20110906
  Transmission Date: 20111222
  Serious: Yes (Death)
  Sender: FDA-Public Use
  Company Number: CA-ALEXION-A201101355

PATIENT
  Sex: Female

DRUGS (3)
  1. SOLIRIS [Suspect]
     Indication: PAROXYSMAL NOCTURNAL HAEMOGLOBINURIA
     Dosage: 900 MG, Q2W
     Route: 042
     Dates: start: 20090612, end: 20110902
  2. COUMADIN [Concomitant]
     Indication: ANTICOAGULANT THERAPY
     Route: 048
  3. PAIN RELIEF [Concomitant]
     Indication: PAIN

REACTIONS (1)
  - DEATH [None]
